FAERS Safety Report 4362170-3 (Version None)
Quarter: 2004Q2

REPORT INFORMATION
  Report Type: 
  Country: None (occurrence: None)
  Receive Date: 20040517
  Receipt Date: 20040506
  Transmission Date: 20050107
  Serious: No
  Sender: FDA-Public Use
  Company Number: 2004UW09368

PATIENT
  Age: 59 Year
  Sex: Male
  Weight: 112.5 kg

DRUGS (7)
  1. IRESSA [Suspect]
     Indication: NON-SMALL CELL LUNG CANCER
     Dosage: 250 MG QD PO
     Route: 048
  2. ACIPHEX [Concomitant]
  3. FLOVENT [Concomitant]
  4. MULTI-VITAMINS [Concomitant]
  5. WELLBUTRIN [Concomitant]
  6. AMBIEN [Concomitant]
  7. BENADRYL [Concomitant]

REACTIONS (2)
  - CONSTIPATION [None]
  - SPLENIC INFARCTION [None]
